FAERS Safety Report 14009113 (Version 1)
Quarter: 2017Q3

REPORT INFORMATION
  Report Type: Spontaneous
  Country: GB (occurrence: GB)
  Receive Date: 20170925
  Receipt Date: 20170925
  Transmission Date: 20171128
  Serious: Yes (Other)
  Sender: FDA-Public Use
  Company Number: GB-PFIZER INC-2017407507

PATIENT
  Age: 48 Year
  Sex: Male

DRUGS (6)
  1. GENTAMICIN SULFATE. [Suspect]
     Active Substance: GENTAMICIN SULFATE
     Indication: PSEUDOMONAS INFECTION
     Dosage: 240 MG, UNK
     Route: 042
     Dates: start: 20150603
  2. GENTAMICIN SULFATE. [Suspect]
     Active Substance: GENTAMICIN SULFATE
     Dosage: 160 MG, UNK
     Dates: start: 2015
  3. CEFUROXIME. [Suspect]
     Active Substance: CEFUROXIME
     Indication: HAEMATURIA
     Dosage: UNK
     Route: 042
  4. RAMIPRIL. [Concomitant]
     Active Substance: RAMIPRIL
     Dosage: 1.25 MG, DAILY
  5. FERROUS SULFATE. [Concomitant]
     Active Substance: FERROUS SULFATE
     Indication: PSEUDOMONAS INFECTION
     Dosage: 200 MG, DAILY
  6. CEFUROXIME. [Suspect]
     Active Substance: CEFUROXIME
     Indication: SINUS TACHYCARDIA

REACTIONS (2)
  - Sepsis [Unknown]
  - Drug ineffective [Unknown]
